FAERS Safety Report 6297983-4 (Version None)
Quarter: 2009Q3

REPORT INFORMATION
  Report Type: 
  Country: None (occurrence: None)
  Receive Date: 20090805
  Receipt Date: 20090728
  Transmission Date: 20100115
  Serious: Yes (Disabling)
  Sender: FDA-Public Use
  Company Number: B0579423A

PATIENT
  Sex: Male

DRUGS (5)
  1. ARIXTRA [Suspect]
     Indication: THROMBOSIS PROPHYLAXIS
     Dosage: 7.5MG PER DAY
     Route: 058
     Dates: start: 20080101
  2. ONDANSETRON HCL [Concomitant]
     Indication: VOMITING
     Dosage: 16MG FOUR TIMES PER WEEK
     Route: 048
  3. GEMZAR [Concomitant]
     Dosage: 1G PER DAY
     Route: 042
  4. SOLUPRED [Concomitant]
     Dosage: 60MG UNKNOWN
     Route: 048
  5. RADIOTHERAPY [Concomitant]

REACTIONS (4)
  - GENERAL PHYSICAL HEALTH DETERIORATION [None]
  - INCORRECT DRUG ADMINISTRATION DURATION [None]
  - OFF LABEL USE [None]
  - SOMNOLENCE [None]
